FAERS Safety Report 16595229 (Version 2)
Quarter: 2024Q2

REPORT INFORMATION
  Report Type: Spontaneous
  Country: US (occurrence: None)
  Receive Date: 20190718
  Receipt Date: 20240527
  Transmission Date: 20240716
  Serious: No
  Sender: FDA-Public Use
  Company Number: 2019SE93132

PATIENT
  Age: 651 Month
  Sex: Male
  Weight: 117.9 kg

DRUGS (1)
  1. BYETTA [Suspect]
     Active Substance: EXENATIDE
     Indication: Type 2 diabetes mellitus
     Route: 058

REACTIONS (4)
  - Blood glucose increased [Recovering/Resolving]
  - Product dose omission issue [Not Recovered/Not Resolved]
  - Product use issue [Not Recovered/Not Resolved]
  - Drug delivery system malfunction [Unknown]

NARRATIVE: CASE EVENT DATE: 20190601
